FAERS Safety Report 5270728-2 (Version None)
Quarter: 2007Q1

REPORT INFORMATION
  Report Type: 
  Country: None (occurrence: None)
  Receive Date: 20070319
  Receipt Date: 20070319
  Transmission Date: 20070707
  Serious: No
  Sender: FDA-Public Use
  Company Number: None

PATIENT
  Sex: Female
  Weight: 52.1637 kg

DRUGS (2)
  1. ZOLOFT [Suspect]
     Indication: ANXIETY
     Dosage: 100 MG, DAILY PO
     Route: 048
     Dates: start: 20061101, end: 20070130
  2. ZOLOFT [Suspect]
     Indication: DEPRESSION
     Dosage: 100 MG, DAILY PO
     Route: 048
     Dates: start: 20061101, end: 20070130

REACTIONS (2)
  - ADVERSE DRUG REACTION [None]
  - PHARMACEUTICAL PRODUCT COMPLAINT [None]
